FAERS Safety Report 7793494-5 (Version None)
Quarter: 2011Q4

REPORT INFORMATION
  Report Type: 
  Country: None (occurrence: None)
  Receive Date: 20111003
  Receipt Date: 20110129
  Transmission Date: 20120403
  Serious: No
  Sender: FDA-Public Use
  Company Number: US-BAYER-2011-010969

PATIENT
  Age: 86 Year
  Sex: Male

DRUGS (1)
  1. CIPRO [Suspect]
     Dosage: 500 MG, BID
     Route: 048
     Dates: start: 20110128, end: 20110129

REACTIONS (1)
  - INCORRECT DOSE ADMINISTERED [None]
